FAERS Safety Report 23192047 (Version 6)
Quarter: 2025Q2

REPORT INFORMATION
  Report Type: Other
  Country: US (occurrence: US)
  Receive Date: 20231116
  Receipt Date: 20250506
  Transmission Date: 20250716
  Serious: No
  Sender: TRAVERE THERAPEUTICS
  Company Number: US-TRAVERE-2023TVT00657

PATIENT
  Sex: Female
  Weight: 63.5 kg

DRUGS (6)
  1. FILSPARI [Suspect]
     Active Substance: SPARSENTAN
     Indication: IgA nephropathy
     Dosage: 400 MG
     Route: 048
     Dates: start: 20230826
  2. ROSUVASTATIN CALCIUM [Suspect]
     Active Substance: ROSUVASTATIN CALCIUM
  3. LO LOESTRIN FE [Concomitant]
     Active Substance: ETHINYL ESTRADIOL\NORETHINDRONE ACETATE
  4. CALCIUM [Concomitant]
     Active Substance: CALCIUM
  5. Vitamin D-400 [Concomitant]
  6. TARPEYO [Concomitant]
     Active Substance: BUDESONIDE

REACTIONS (10)
  - Laboratory test abnormal [Unknown]
  - Drug ineffective [Unknown]
  - Rash pruritic [Unknown]
  - Blood creatinine increased [Unknown]
  - Glomerular filtration rate decreased [Unknown]
  - Myalgia [Unknown]
  - Weight increased [Unknown]
  - Weight decreased [Unknown]
  - Blood pressure decreased [None]
  - Dizziness [Unknown]
